FAERS Safety Report 6213509-5 (Version None)
Quarter: 2009Q2

REPORT INFORMATION
  Report Type: 
  Country: None (occurrence: None)
  Receive Date: 20090603
  Receipt Date: 20090527
  Transmission Date: 20091009
  Serious: Yes (Hospitalization)
  Sender: FDA-Public Use
  Company Number: US-PFIZER INC-2009218457

PATIENT
  Sex: Male
  Weight: 99 kg

DRUGS (21)
  1. NAPROXEN [Suspect]
     Indication: OSTEOARTHRITIS
     Dosage: UNK
     Route: 048
     Dates: start: 20070426, end: 20080720
  2. BLINDED *PLACEBO [Suspect]
     Indication: OSTEOARTHRITIS
     Dosage: UNK
     Route: 048
     Dates: start: 20070426, end: 20080720
  3. BLINDED CELECOXIB [Suspect]
     Indication: OSTEOARTHRITIS
     Dosage: UNK
     Route: 048
     Dates: start: 20070426, end: 20080720
  4. IBUPROFEN [Suspect]
     Indication: OSTEOARTHRITIS
     Dosage: UNK
     Route: 048
     Dates: start: 20070426, end: 20080720
  5. NAPROXEN [Suspect]
     Dosage: UNK
     Route: 048
     Dates: start: 20070426, end: 20080720
  6. NAPROXEN [Suspect]
     Dosage: UNK
     Route: 048
     Dates: start: 20080802, end: 20090319
  7. BLINDED *PLACEBO [Suspect]
     Dosage: UNK
     Route: 048
     Dates: start: 20080802, end: 20090319
  8. BLINDED CELECOXIB [Suspect]
     Dosage: UNK
     Route: 048
     Dates: start: 20080802, end: 20090319
  9. IBUPROFEN [Suspect]
     Dosage: UNK
     Route: 048
     Dates: start: 20080802, end: 20090319
  10. NAPROXEN [Suspect]
     Dosage: UNK
     Route: 048
     Dates: start: 20080802, end: 20090319
  11. NAPROXEN [Suspect]
     Dosage: UNK
     Route: 048
     Dates: start: 20090328, end: 20090407
  12. BLINDED *PLACEBO [Suspect]
     Dosage: UNK
     Route: 048
     Dates: start: 20090328, end: 20090407
  13. BLINDED CELECOXIB [Suspect]
     Dosage: UNK
     Route: 048
     Dates: start: 20090328, end: 20090407
  14. IBUPROFEN [Suspect]
     Dosage: UNK
     Route: 048
     Dates: start: 20090328, end: 20090407
  15. NAPROXEN [Suspect]
     Dosage: UNK
     Route: 048
     Dates: start: 20090328, end: 20090407
  16. HEPARIN SODIUM [Suspect]
     Dosage: 7 DAY DURATION
     Route: 058
  17. NEXIUM [Concomitant]
     Dosage: UNK
     Route: 048
     Dates: start: 20070426, end: 20090407
  18. ALTACE [Concomitant]
     Dosage: UNK
     Route: 048
     Dates: start: 20050415
  19. ASPIRIN [Concomitant]
     Dosage: UNK
     Route: 048
     Dates: start: 19980101
  20. LOVASTATIN [Concomitant]
     Dosage: UNK
     Route: 048
     Dates: start: 20060414
  21. CHONDROITIN/GLUCOSAMINE [Concomitant]
     Dosage: UNK
     Route: 048
     Dates: start: 20050101

REACTIONS (1)
  - IRON DEFICIENCY ANAEMIA [None]
